FAERS Safety Report 22063161 (Version 1)
Quarter: 2023Q1

REPORT INFORMATION
  Report Type: Spontaneous
  Country: KR (occurrence: KR)
  Receive Date: 20230306
  Receipt Date: 20230306
  Transmission Date: 20230417
  Serious: Yes (Other)
  Sender: FDA-Public Use
  Company Number: KR-UCBSA-2023010875

PATIENT
  Sex: Male

DRUGS (2)
  1. KEPPRA [Suspect]
     Active Substance: LEVETIRACETAM
     Indication: Alcoholic seizure
     Dosage: 1 DOSAGE FORM, ONCE DAILY (QD)
     Dates: start: 20210528, end: 20210603
  2. MEROPENEM SODIUM CARBONATE [Suspect]
     Active Substance: MEROPENEM SODIUM CARBONATE
     Indication: Pneumonia
     Dosage: 1 DOSAGE FORM, ONCE DAILY (QD)
     Dates: start: 20210527, end: 20210607

REACTIONS (2)
  - Thrombocytopenia [Recovered/Resolved]
  - Off label use [Unknown]

NARRATIVE: CASE EVENT DATE: 20210528
